FAERS Safety Report 7065094-6 (Version None)
Quarter: 2010Q4

REPORT INFORMATION
  Report Type: 
  Country: None (occurrence: None)
  Receive Date: 20101027
  Receipt Date: 19911231
  Transmission Date: 20110411
  Serious: Yes (Death)
  Sender: FDA-Public Use
  Company Number: FR-ROCHE-910500153001

PATIENT
  Age: 64 Year
  Sex: Male

DRUGS (4)
  1. ROCEPHIN [Suspect]
     Indication: RESPIRATORY FAILURE
     Route: 030
  2. SOLU-MEDROL [Concomitant]
     Route: 065
  3. MS CONTIN [Concomitant]
     Route: 048
  4. PNEUMOREL [Concomitant]
     Route: 048

REACTIONS (2)
  - DEATH [None]
  - OEDEMA PERIPHERAL [None]
